FAERS Safety Report 8541553-1 (Version None)
Quarter: 2012Q3

REPORT INFORMATION
  Report Type: 
  Country: None (occurrence: None)
  Receive Date: 20120726
  Receipt Date: 20120510
  Transmission Date: 20120928
  Serious: No
  Sender: FDA-Public Use
  Company Number: US-MUTUAL PHARMACEUTICAL COMPANY, INC.-CLCY20120081

PATIENT
  Sex: Female
  Weight: 65.83 kg

DRUGS (7)
  1. COLCRYS [Suspect]
     Indication: PERICARDITIS
     Route: 048
     Dates: start: 20120423, end: 20120504
  2. SYNTHROID [Concomitant]
     Indication: HYPOTHYROIDISM
     Route: 048
  3. ENABLEX [Concomitant]
     Indication: HYPERTONIC BLADDER
     Route: 048
  4. PLAQUENIL [Concomitant]
     Indication: SYSTEMIC LUPUS ERYTHEMATOSUS
     Route: 048
  5. XANAX [Concomitant]
     Indication: TACHYCARDIA
     Route: 048
  6. PREDNISONE [Concomitant]
     Indication: PERICARDITIS
     Route: 048
  7. TOPROL-XL [Concomitant]
     Indication: TACHYCARDIA
     Route: 048

REACTIONS (10)
  - ORAL DISCOMFORT [None]
  - GASTROOESOPHAGEAL REFLUX DISEASE [None]
  - LARYNGEAL INFLAMMATION [None]
  - GLOSSODYNIA [None]
  - PHARYNGEAL INFLAMMATION [None]
  - DYSPEPSIA [None]
  - THROAT IRRITATION [None]
  - DYSPHONIA [None]
  - OFF LABEL USE [None]
  - DIARRHOEA [None]
